FAERS Safety Report 7638823-8 (Version None)
Quarter: 2011Q3

REPORT INFORMATION
  Report Type: 
  Country: None (occurrence: None)
  Receive Date: 20110721
  Receipt Date: 20110719
  Transmission Date: 20111222
  Serious: Yes (Life-Threatening, Hospitalization, Other)
  Sender: FDA-Public Use
  Company Number: 201110698

PATIENT
  Age: 73 Year
  Sex: Male

DRUGS (1)
  1. LIORESAL [Suspect]
     Indication: MUSCLE SPASTICITY
     Dosage: SEE B5

REACTIONS (8)
  - PUMP RESERVOIR ISSUE [None]
  - DEVICE LEAKAGE [None]
  - INTRACRANIAL HYPOTENSION [None]
  - LETHARGY [None]
  - OVERDOSE [None]
  - COMA [None]
  - DELIRIUM [None]
  - DEVICE CONNECTION ISSUE [None]
